FAERS Safety Report 24006697 (Version 1)
Quarter: 2024Q2

REPORT INFORMATION
  Report Type: Spontaneous
  Country: US (occurrence: None)
  Receive Date: 20240623
  Receipt Date: 20240623
  Transmission Date: 20240716
  Serious: Yes (Hospitalization, Other)
  Sender: FDA-Public Use
  Company Number: None

PATIENT
  Age: 39 Year
  Sex: Female
  Weight: 56.7 kg

DRUGS (1)
  1. MIRENA [Suspect]
     Active Substance: LEVONORGESTREL

REACTIONS (9)
  - Coital bleeding [None]
  - Coital bleeding [None]
  - Intermenstrual bleeding [None]
  - Cervicitis [None]
  - Infection [None]
  - Pelvic pain [None]
  - Unexpected vaginal bleeding on hormonal IUD [None]
  - Medical device site scar [None]
  - Purulent discharge [None]

NARRATIVE: CASE EVENT DATE: 20240401
